FAERS Safety Report 16726433 (Version 1)
Quarter: 2019Q3

REPORT INFORMATION
  Report Type: Spontaneous
  Country: US (occurrence: US)
  Receive Date: 20190821
  Receipt Date: 20190821
  Transmission Date: 20191005
  Serious: Yes (Other)
  Sender: FDA-Public Use
  Company Number: US-AMERICAN REGENT INC-20191390

PATIENT
  Age: 51 Year
  Sex: Female

DRUGS (5)
  1. VENOFER [Suspect]
     Active Substance: IRON SUCROSE
     Dosage: 400 MG (FOURTH DOSE) OVER 2 HOURS
     Route: 042
     Dates: start: 20190620, end: 20190620
  2. BENADRYL [Concomitant]
     Active Substance: DIPHENHYDRAMINE HYDROCHLORIDE
     Dosage: UNKNOWN
     Route: 065
  3. VENOFER [Suspect]
     Active Substance: IRON SUCROSE
     Indication: PRODUCT USED FOR UNKNOWN INDICATION
     Dosage: UNKNOWN (THIRD DOSE) 1 DAYS
     Route: 042
     Dates: start: 20190611, end: 20190611
  4. VENOFER [Suspect]
     Active Substance: IRON SUCROSE
     Dosage: 200 MG (FIFTH DOSE)
     Route: 065
     Dates: start: 20190624, end: 20190624
  5. VENOFER [Suspect]
     Active Substance: IRON SUCROSE
     Dosage: UNKNOWN (FIRST TWO DOSES)
     Route: 065
     Dates: start: 2019, end: 2019

REACTIONS (12)
  - Malaise [Recovered/Resolved]
  - Muscle spasms [Recovered/Resolved]
  - Dyspnoea [Recovered/Resolved]
  - Nausea [Recovered/Resolved]
  - Feeling hot [Recovered/Resolved]
  - Blood pressure systolic increased [Recovered/Resolved]
  - Off label use [Unknown]
  - Abdominal pain [Recovered/Resolved]
  - Tremor [Recovered/Resolved]
  - Hypersensitivity [Recovered/Resolved]
  - Flushing [Recovered/Resolved]
  - Vomiting [Recovered/Resolved]

NARRATIVE: CASE EVENT DATE: 20190611
